FAERS Safety Report 8461442 (Version 4)
Quarter: 2012Q4

REPORT INFORMATION
  Report Type: 
  Country: IT (occurrence: IT)
  Receive Date: 20120315
  Receipt Date: 20120915
  Transmission Date: 20130627
  Serious: Yes (Congenital Anomaly)
  Sender: FDA-Public Use
  Company Number: IT-MERCK-1203ITA00007B1

PATIENT
  Age: 0 None

DRUGS (5)
  1. ISENTRESS [Suspect]
     Indication: HIV INFECTION
     Route: 064
     Dates: start: 201202
  2. TENOFOVIR DISOPROXIL FUMARATE [Concomitant]
     Dates: end: 201110
  3. REYATAZ [Concomitant]
     Dates: end: 201110
  4. KALETRA [Concomitant]
     Dates: start: 201201, end: 201202
  5. COMBIVIR [Concomitant]
     Dates: start: 201201

REACTIONS (2)
  - Trisomy 21 [Unknown]
  - Foetal exposure during pregnancy [Unknown]
